FAERS Safety Report 13521528 (Version 6)
Quarter: 2018Q1

REPORT INFORMATION
  Report Type: Report from Study
  Country: US (occurrence: US)
  Receive Date: 20170508
  Receipt Date: 20180104
  Transmission Date: 20180508
  Serious: Yes (Death)
  Sender: FDA-Public Use
  Company Number: PHEH2017US012970

PATIENT
  Age: 74 Year
  Sex: Female

DRUGS (1)
  1. KISQALI [Suspect]
     Active Substance: RIBOCICLIB
     Indication: PRODUCT USED FOR UNKNOWN INDICATION
     Dosage: UNK, QD
     Route: 048

REACTIONS (12)
  - Rhinorrhoea [Unknown]
  - Gastric disorder [Unknown]
  - Constipation [Unknown]
  - Tumour marker increased [Unknown]
  - Fatigue [Unknown]
  - Hypersensitivity [Unknown]
  - Cystitis [Unknown]
  - Death [Fatal]
  - Dizziness [Unknown]
  - Urinary tract infection [Unknown]
  - Diarrhoea [Unknown]
  - Nausea [Unknown]

NARRATIVE: CASE EVENT DATE: 20170502
